FAERS Safety Report 8098196-6 (Version None)
Quarter: 2012Q1

REPORT INFORMATION
  Report Type: 
  Country: None (occurrence: None)
  Receive Date: 20120128
  Receipt Date: 20110809
  Transmission Date: 20120608
  Serious: No
  Sender: FDA-Public Use
  Company Number: US-ABBOTT-11P-163-0845155-00

PATIENT
  Age: 32 Year
  Sex: Female

DRUGS (4)
  1. TOPROL-XL [Concomitant]
     Indication: HYPERTENSION
     Dosage: 25 MG DAILY
  2. PENTASA [Concomitant]
     Indication: CROHN'S DISEASE
  3. HUMIRA [Suspect]
     Indication: CROHN'S DISEASE
     Dates: start: 20110201
  4. LAMISIL [Concomitant]
     Indication: ONYCHOMYCOSIS
     Dosage: 250 MG DAILY

REACTIONS (1)
  - INJECTION SITE URTICARIA [None]
